FAERS Safety Report 8693514 (Version 3)
Quarter: 2012Q4

REPORT INFORMATION
  Report Type: 
  Country: CA (occurrence: CA)
  Receive Date: 20120730
  Receipt Date: 20121212
  Transmission Date: 20130627
  Serious: Yes (Hospitalization, Other)
  Sender: FDA-Public Use
  Company Number: CA-ABBOTT-12P-028-0960863-00

PATIENT
  Age: 53 Year
  Sex: Male

DRUGS (2)
  1. EPIVAL [Suspect]
     Indication: PRODUCT USED FOR UNKNOWN INDICATION
     Dates: start: 201012
  2. DILANTIN [Suspect]
     Indication: PRODUCT USED FOR UNKNOWN INDICATION
     Route: 048
     Dates: end: 201012

REACTIONS (11)
  - Convulsion [Unknown]
  - Dysarthria [Unknown]
  - Impaired self-care [Unknown]
  - Lethargy [Unknown]
  - Movement disorder [Unknown]
  - Dysarthria [Unknown]
  - Toxicity to various agents [Unknown]
  - Toxicity to various agents [Unknown]
  - Speech disorder [Unknown]
  - Mobility decreased [Unknown]
  - Activities of daily living impaired [None]
